FAERS Safety Report 4284509-X (Version None)
Quarter: 2004Q1

REPORT INFORMATION
  Report Type: 
  Country: None (occurrence: None)
  Receive Date: 20040130
  Receipt Date: 20040130
  Transmission Date: 20041129
  Serious: Yes (Life-Threatening, Hospitalization)
  Sender: FDA-Public Use
  Company Number: None

PATIENT
  Age: 30 Year
  Sex: Male
  Weight: 70 kg

DRUGS (1)
  1. CLONIDINE [Suspect]
     Indication: ABNORMAL BEHAVIOUR
     Dosage: 0.3 PO QD
     Route: 048

REACTIONS (1)
  - BRADYCARDIA [None]
